FAERS Safety Report 6849582-0 (Version None)
Quarter: 2010Q3

REPORT INFORMATION
  Report Type: 
  Country: None (occurrence: None)
  Receive Date: 20100716
  Receipt Date: 20100708
  Transmission Date: 20110219
  Serious: Yes (Hospitalization, Other)
  Sender: FDA-Public Use
  Company Number: US-ABBOTT-10P-163-0637475-00

PATIENT
  Sex: Male
  Weight: 161.62 kg

DRUGS (3)
  1. HUMIRA [Suspect]
     Indication: PSORIASIS
     Dates: start: 20090501, end: 20091101
  2. METHOTREXATE [Concomitant]
     Indication: PRODUCT USED FOR UNKNOWN INDICATION
     Dosage: INTERMITTENTLY
     Dates: start: 20011101, end: 20061101
  3. ENBREL [Concomitant]
     Indication: PRODUCT USED FOR UNKNOWN INDICATION
     Dates: start: 20061101, end: 20080101

REACTIONS (20)
  - ASPIRATION [None]
  - CHOKING [None]
  - COMPUTERISED TOMOGRAM ABNORMAL [None]
  - DIFFUSE LARGE B-CELL LYMPHOMA STAGE I [None]
  - HAEMATEMESIS [None]
  - HYPERPLASIA [None]
  - LUNG NEOPLASM [None]
  - LYMPHADENOPATHY [None]
  - NAUSEA [None]
  - OPERATIVE HAEMORRHAGE [None]
  - OROPHARYNGEAL PAIN [None]
  - PERITONSILLAR ABSCESS [None]
  - PHARYNGEAL HAEMORRHAGE [None]
  - PHARYNGEAL STENOSIS [None]
  - PHARYNGITIS [None]
  - PSORIASIS [None]
  - TONSILLAR DISORDER [None]
  - TONSILLAR HYPERTROPHY [None]
  - TONSILLAR INFLAMMATION [None]
  - TONSILLITIS [None]
